FAERS Safety Report 15405600 (Version 2)
Quarter: 2019Q2

REPORT INFORMATION
  Report Type: Spontaneous
  Country: FI (occurrence: FI)
  Receive Date: 20180920
  Receipt Date: 20190411
  Transmission Date: 20190711
  Serious: Yes (Death, Hospitalization, Other)
  Sender: FDA-Public Use
  Company Number: FI-ROCHE-2182334

PATIENT
  Age: 3 Day
  Sex: Female
  Weight: 1.53 kg

DRUGS (1)
  1. ROACTEMRA [Suspect]
     Active Substance: TOCILIZUMAB
     Indication: PRODUCT USED FOR UNKNOWN INDICATION
     Route: 064

REACTIONS (7)
  - Hyperglycaemia [Unknown]
  - Cerebellar haemorrhage [Unknown]
  - Cardiomyopathy neonatal [Unknown]
  - Haemophagocytic lymphohistiocytosis [Fatal]
  - Hepatic fibrosis [Unknown]
  - Neonatal lupus erythematosus [Unknown]
  - Foetal exposure during pregnancy [Unknown]
